FAERS Safety Report 17957096 (Version 1)
Quarter: 2020Q2

REPORT INFORMATION
  Report Type: Spontaneous
  Country: US (occurrence: US)
  Receive Date: 20200629
  Receipt Date: 20200629
  Transmission Date: 20200714
  Serious: Yes (Death, Other)
  Sender: FDA-Public Use
  Company Number: US-SA-2020SA166002

PATIENT

DRUGS (1)
  1. ZANTAC [Suspect]
     Active Substance: RANITIDINE HYDROCHLORIDE
     Dosage: UNK UNK UNK
     Route: 065
     Dates: start: 2015, end: 2018

REACTIONS (6)
  - Gastric cancer [Fatal]
  - Hepatic cancer [Fatal]
  - Bladder cancer [Fatal]
  - Pancreatic carcinoma [Fatal]
  - Prostate cancer [Fatal]
  - Colorectal cancer [Fatal]

NARRATIVE: CASE EVENT DATE: 201801
